FAERS Safety Report 9994315 (Version 1)
Quarter: 2014Q1

REPORT INFORMATION
  Report Type: Spontaneous
  Country: AU (occurrence: AU)
  Receive Date: 20140311
  Receipt Date: 20140311
  Transmission Date: 20141002
  Serious: Yes (Hospitalization)
  Sender: FDA-Public Use
  Company Number: AU-ROCHE-1359801

PATIENT
  Age: 37 Year
  Sex: Female

DRUGS (6)
  1. RIBAVIRIN [Suspect]
     Indication: HEPATITIS C
     Route: 048
     Dates: start: 20130920, end: 20131020
  2. PEGINTERFERON ALFA-2B [Suspect]
     Indication: HEPATITIS C
     Route: 058
     Dates: start: 20130920, end: 20131018
  3. BENZTROPINE MESYLATE [Concomitant]
  4. DIAZEPAM [Concomitant]
     Route: 065
     Dates: start: 20130813
  5. ENDEP [Concomitant]
     Route: 065
     Dates: start: 20130813
  6. HALOPERIDOL [Concomitant]

REACTIONS (6)
  - Psychotic disorder [Recovering/Resolving]
  - Paranoia [Recovering/Resolving]
  - Hallucination, auditory [Recovering/Resolving]
  - Suicidal ideation [Recovering/Resolving]
  - Condition aggravated [Recovering/Resolving]
  - Activities of daily living impaired [Recovering/Resolving]
